FAERS Safety Report 16891239 (Version 1)
Quarter: 2019Q4

REPORT INFORMATION
  Report Type: Spontaneous
  Country: US (occurrence: US)
  Receive Date: 20190812
  Receipt Date: 20190812
  Transmission Date: 20200122
  Serious: No
  Sender: FDA-Public Use
  Company Number: None

PATIENT
  Age: 58 Year
  Sex: Female

DRUGS (1)
  1. COPAXONE [Suspect]
     Active Substance: GLATIRAMER ACETATE
     Dates: start: 1999

REACTIONS (3)
  - Injection site pain [None]
  - Injection site discharge [None]
  - Injection site bruising [None]

NARRATIVE: CASE EVENT DATE: 20190812
